FAERS Safety Report 18196388 (Version 2)
Quarter: 2020Q3

REPORT INFORMATION
  Report Type: Spontaneous
  Country: AU (occurrence: AU)
  Receive Date: 20200825
  Receipt Date: 20200828
  Transmission Date: 20201103
  Serious: Yes (Life-Threatening, Hospitalization, Other)
  Sender: FDA-Public Use
  Company Number: AU-AMGEN-AUSSP2020137214

PATIENT
  Age: 51 Year
  Sex: Male

DRUGS (4)
  1. PERINDOPRIL [Concomitant]
     Active Substance: PERINDOPRIL
     Indication: HYPERTENSION
     Dosage: 2 MG, QD
     Route: 048
     Dates: start: 20200714
  2. AIMOVIG [Suspect]
     Active Substance: ERENUMAB-AOOE
     Indication: MIGRAINE
     Dosage: 140 MG, EVERY 4 WEEKS
     Route: 058
     Dates: start: 201812, end: 20200714
  3. ASPIRIN [ACETYLSALICYLIC ACID] [Concomitant]
     Active Substance: ASPIRIN
     Indication: DISEASE RISK FACTOR
     Dosage: 100 MG, QD
     Route: 048
     Dates: start: 20200714
  4. TICAGRELOR. [Concomitant]
     Active Substance: TICAGRELOR
     Indication: DISEASE RISK FACTOR
     Dosage: 90 MG, BID
     Route: 048
     Dates: start: 20200714

REACTIONS (6)
  - Coronary artery occlusion [Recovered/Resolved]
  - Dyslipidaemia [Unknown]
  - Bicuspid aortic valve [Unknown]
  - Coronary artery stenosis [Unknown]
  - Myocardial ischaemia [Recovered/Resolved]
  - Angina pectoris [Unknown]

NARRATIVE: CASE EVENT DATE: 20200714
